FAERS Safety Report 9704862 (Version 2)
Quarter: 2013Q4

REPORT INFORMATION
  Report Type: Spontaneous
  Country: CH (occurrence: CH)
  Receive Date: 20131122
  Receipt Date: 20131202
  Transmission Date: 20140711
  Serious: Yes (Life-Threatening, Hospitalization, Other)
  Sender: FDA-Public Use
  Company Number: CH-JNJFOC-20131109114

PATIENT
  Age: 74 Year
  Sex: Male
  Weight: 79 kg

DRUGS (9)
  1. ZYTIGA [Suspect]
     Indication: PRODUCT USED FOR UNKNOWN INDICATION
     Route: 048
     Dates: end: 20130531
  2. ZYTIGA [Suspect]
     Indication: PRODUCT USED FOR UNKNOWN INDICATION
     Route: 048
     Dates: start: 20130515, end: 20130521
  3. ZYTIGA [Suspect]
     Indication: PRODUCT USED FOR UNKNOWN INDICATION
     Route: 048
     Dates: start: 20130531, end: 20131004
  4. ZOLPIDEM [Concomitant]
     Indication: SLEEP DISORDER
     Route: 048
     Dates: start: 20100101
  5. PREDNISONE [Concomitant]
     Route: 048
     Dates: start: 20130531
  6. METFIN [Concomitant]
     Indication: TYPE 2 DIABETES MELLITUS
     Route: 048
     Dates: start: 20100101
  7. EPRIL [Concomitant]
     Indication: ESSENTIAL HYPERTENSION
     Route: 048
     Dates: start: 20100101
  8. LEXOTANIL [Concomitant]
     Indication: ANXIETY DISORDER
     Route: 048
     Dates: start: 20100101
  9. TEMGESIC [Concomitant]
     Dosage: 0.2 1-2 TIMES
     Route: 065

REACTIONS (9)
  - Cardiac arrest [Recovered/Resolved]
  - Torsade de pointes [Recovered/Resolved]
  - Loss of consciousness [Recovered/Resolved]
  - Hypocalcaemia [Unknown]
  - Ventricular fibrillation [Recovered/Resolved]
  - Electrocardiogram QT interval abnormal [Recovered/Resolved]
  - Hypokalaemia [Recovered/Resolved]
  - Malaise [Recovered/Resolved]
  - Incorrect dose administered [Unknown]
